FAERS Safety Report 23853535 (Version 1)
Quarter: 2024Q2

REPORT INFORMATION
  Report Type: Report from Study
  Country: CA (occurrence: CA)
  Receive Date: 20240514
  Receipt Date: 20240514
  Transmission Date: 20240715
  Serious: Yes (Hospitalization)
  Sender: FDA-Public Use
  Company Number: CA-002147023-NVSC2024CA092312

PATIENT
  Age: 28 Year
  Sex: Female

DRUGS (1)
  1. COSENTYX [Suspect]
     Active Substance: SECUKINUMAB
     Indication: Psoriatic arthropathy
     Dosage: 150 MG, QW (WEEKS 0, 1, 2, 3, AND 4)
     Route: 058
     Dates: start: 20240423

REACTIONS (6)
  - Pelvic infection [Unknown]
  - Pyrexia [Unknown]
  - Abdominal pain [Unknown]
  - Intermenstrual bleeding [Unknown]
  - Urinary tract infection [Unknown]
  - Bacterial vaginosis [Unknown]
